FAERS Safety Report 7460768-7 (Version None)
Quarter: 2011Q2

REPORT INFORMATION
  Report Type: 
  Country: None (occurrence: None)
  Receive Date: 20110505
  Receipt Date: 20110428
  Transmission Date: 20111010
  Serious: Yes (Other)
  Sender: FDA-Public Use
  Company Number: PHHY2011JP28748

PATIENT
  Sex: Male
  Weight: 10 kg

DRUGS (7)
  1. TELGIN-G [Suspect]
     Dosage: 0.5 G, UNK
     Route: 048
     Dates: start: 20110105
  2. TELGIN-G [Suspect]
     Dosage: 0.5 G, UNK
     Route: 048
     Dates: start: 20110120, end: 20110404
  3. ZADITEN [Suspect]
     Dosage: 0.3 G, BID
     Dates: start: 20101210, end: 20101227
  4. ZADITEN [Suspect]
     Indication: DERMATITIS ATOPIC
     Dosage: 0.3 G, BID
     Route: 048
     Dates: start: 20100701
  5. ZADITEN [Suspect]
     Dosage: 0.3 G, BID
     Dates: start: 20101125
  6. TELGIN-G [Suspect]
     Dosage: 1 G, DAILY
     Route: 048
     Dates: start: 20101231
  7. BIOTIN [Concomitant]
     Indication: DERMATITIS ATOPIC
     Dosage: 1 G, UNK
     Route: 048
     Dates: start: 20100820

REACTIONS (1)
  - CONVULSION [None]
